FAERS Safety Report 17097302 (Version 1)
Quarter: 2019Q4

REPORT INFORMATION
  Report Type: Spontaneous
  Country: US (occurrence: US)
  Receive Date: 20191202
  Receipt Date: 20191202
  Transmission Date: 20200122
  Serious: Yes (Death, Hospitalization)
  Sender: FDA-Public Use
  Company Number: US-LUPIN PHARMACEUTICALS INC.-2019-07919

PATIENT
  Age: 58 Year
  Sex: Male

DRUGS (16)
  1. HYDROMORPHONE [Suspect]
     Active Substance: HYDROMORPHONE
     Dosage: 4 MILLIGRAM,INCREASED TO 6MG/H BASAL RATE AND 4MG EVERY 15 MINUTES DEMAND SETTINGS
     Route: 042
     Dates: start: 2018
  2. HYDROMORPHONE [Suspect]
     Active Substance: HYDROMORPHONE
     Dosage: 6 MILLIGRAM, INCREASED TO 6MG/H BASAL RATE AND 4MG EVERY 15 MINUTES DEMAND SETTINGS
     Route: 042
     Dates: start: 2018
  3. HYDROMORPHONE [Suspect]
     Active Substance: HYDROMORPHONE
     Dosage: 2 MILLIGRAM, DISCHARGED HOME ON A HYDROMORPHONE PCA PUMP AT 2 MG/H BASAL RATE PLUS 2MG EVERY 20-MINU
     Route: 042
     Dates: start: 2018
  4. LORAZEPAM. [Suspect]
     Active Substance: LORAZEPAM
     Indication: ANXIETY
     Dosage: 1 MILLIGRAM, BID
     Route: 048
  5. HYDROMORPHONE [Suspect]
     Active Substance: HYDROMORPHONE
     Dosage: 4 MILLIGRAM, IV HYDROMORPHONE PATIENT-CONTROLLED ANALGESIC (PCA) PUMP WITH UTILIZATION OF ABOUT 4MG/
     Route: 042
     Dates: start: 2018
  6. FENTANYL. [Suspect]
     Active Substance: FENTANYL
     Indication: CANCER PAIN
     Dosage: 200 MICROGRAM, INCREASED SHORTLY BEFORE DISCHARGE TO 200 MICROG/HOUR
     Route: 062
     Dates: start: 2018
  7. TRAZODONE [Concomitant]
     Active Substance: TRAZODONE HYDROCHLORIDE
     Indication: INSOMNIA
     Dosage: 50 MILLIGRAM, QD, BY MOUTH AS NEEDED FOR SLEEP
     Route: 048
     Dates: end: 2018
  8. OXYCODONE [Concomitant]
     Active Substance: OXYCODONE
     Dosage: 10 MILLIGRAM, MOUTH EVERY 4 HOURS AS NEEDED UPON DISCHARGE
     Route: 048
     Dates: start: 2013
  9. HYDROMORPHONE [Suspect]
     Active Substance: HYDROMORPHONE
     Dosage: 4 MILLIGRAM, 4 MG/H BASAL RATE AND 3 MG EVERY 20 MINUTES DEMAND DOSE
     Route: 042
     Dates: start: 2018
  10. OXYCODONE [Concomitant]
     Active Substance: OXYCODONE
     Dosage: 20 MILLIGRAM, 20 MG BY MOUTH EVERY 8 HOURS
     Route: 048
     Dates: start: 2018
  11. MORPHINE [Suspect]
     Active Substance: MORPHINE
     Indication: PRODUCT USED FOR UNKNOWN INDICATION
     Dosage: UNK,BASAL RATE OF 25 MG/H AND DEMAND DOSING OF 15 MG EVERY 20 MINUTES
     Route: 065
  12. FENTANYL. [Suspect]
     Active Substance: FENTANYL
     Dosage: 150 MICROGRAM
     Route: 062
     Dates: start: 2018
  13. NORTRIPTYLINE [Concomitant]
     Active Substance: NORTRIPTYLINE
     Indication: INSOMNIA
     Dosage: 50 MILLIGRAM, QD, BY MOUTH EVERY MORNING
     Route: 048
  14. HYDROMORPHONE [Suspect]
     Active Substance: HYDROMORPHONE
     Indication: CANCER PAIN
     Dosage: 3 MILLIGRAM, 4 MG/H BASAL RATE AND 3 MG EVERY 20 MINUTES DEMAND DOSE
     Route: 042
     Dates: start: 2018
  15. FENTANYL. [Suspect]
     Active Substance: FENTANYL
     Dosage: 100 MICROGRAM
     Route: 062
     Dates: start: 2018
  16. OXYCODONE [Concomitant]
     Active Substance: OXYCODONE
     Indication: CANCER PAIN
     Dosage: UNK, INCREASED OVER THE NEXT SEVERAL YEARS
     Route: 048

REACTIONS (3)
  - Confusional state [Unknown]
  - Drug ineffective [Unknown]
  - Myoclonus [Unknown]

NARRATIVE: CASE EVENT DATE: 2018
